FAERS Safety Report 23580429 (Version 1)
Quarter: 2024Q1

REPORT INFORMATION
  Report Type: Spontaneous
  Country: US (occurrence: None)
  Receive Date: 20240229
  Receipt Date: 20240229
  Transmission Date: 20240410
  Serious: Yes (Hospitalization)
  Sender: FDA-Public Use
  Company Number: None

PATIENT
  Age: 64 Year
  Sex: Female
  Weight: 106 kg

DRUGS (1)
  1. AVELUMAB [Suspect]
     Active Substance: AVELUMAB
     Dates: end: 20231129

REACTIONS (1)
  - Sepsis [None]

NARRATIVE: CASE EVENT DATE: 20240224
